FAERS Safety Report 23530287 (Version 3)
Quarter: 2024Q2

REPORT INFORMATION
  Report Type: Spontaneous
  Country: US (occurrence: US)
  Receive Date: 20240216
  Receipt Date: 20240510
  Transmission Date: 20240716
  Serious: Yes (Other)
  Sender: FDA-Public Use
  Company Number: US-HORIZON THERAPEUTICS-HZN-2024-001784

PATIENT

DRUGS (12)
  1. TEPEZZA [Suspect]
     Active Substance: TEPROTUMUMAB-TRBW
     Indication: Endocrine ophthalmopathy
     Dosage: 20 MG/KG, EVERY 3 WEEKS
     Route: 042
     Dates: start: 20231113
  2. TEPEZZA [Suspect]
     Active Substance: TEPROTUMUMAB-TRBW
     Dosage: 20 MG/KG, EVERY 3 WEEKS
     Route: 042
     Dates: start: 20231208
  3. TEPEZZA [Suspect]
     Active Substance: TEPROTUMUMAB-TRBW
     Dosage: 20 MG/KG, EVERY 3 WEEKS
     Route: 042
     Dates: start: 20231229
  4. TEPEZZA [Suspect]
     Active Substance: TEPROTUMUMAB-TRBW
     Dosage: 20 MG/KG, EVERY 3 WEEKS
     Route: 042
     Dates: start: 20240124
  5. ESCITALOPRAM [Concomitant]
     Active Substance: ESCITALOPRAM OXALATE
  6. HYDROXYZINE HYDROCHLORIDE [Concomitant]
     Active Substance: HYDROXYZINE HYDROCHLORIDE
  7. METHIMAZOLE [Concomitant]
     Active Substance: METHIMAZOLE
  8. SYSTANE (HYPROMELLOSE 2910 (4000 MPA.S)) [Concomitant]
     Active Substance: HYPROMELLOSE 2910 (4000 MPA.S)
     Dosage: 1 GTT DROPS, PRN
  9. PRED FORTE [Concomitant]
     Active Substance: PREDNISOLONE ACETATE
     Dosage: 1 GTT DROPS, QID
  10. VIGAMOX [Concomitant]
     Active Substance: MOXIFLOXACIN HYDROCHLORIDE
     Dosage: 1 GTT DROPS, QID
  11. CYCLOGYL [Concomitant]
     Active Substance: CYCLOPENTOLATE HYDROCHLORIDE
     Dosage: 1 GTT DROPS, BID
  12. ALPHAGAN P [Concomitant]
     Active Substance: BRIMONIDINE TARTRATE
     Dosage: 1 GTT DROPS, BID

REACTIONS (4)
  - Retinal tear [Recovered/Resolved]
  - Cataract [Unknown]
  - Eyelid ptosis [Unknown]
  - Visual impairment [Unknown]

NARRATIVE: CASE EVENT DATE: 20240201
